FAERS Safety Report 25711771 (Version 1)
Quarter: 2025Q3

REPORT INFORMATION
  Report Type: Spontaneous
  Country: EU (occurrence: EU)
  Receive Date: 20250821
  Receipt Date: 20250821
  Transmission Date: 20251021
  Serious: Yes (Life-Threatening)
  Sender: ROCHE
  Company Number: None

PATIENT
  Age: 82 Year
  Sex: Male
  Weight: 80 kg

DRUGS (11)
  1. METALYSE [Suspect]
     Active Substance: TENECTEPLASE
     Indication: Thrombolysis
     Route: 042
     Dates: start: 20250806, end: 20250806
  2. KARDEGIC [Interacting]
     Active Substance: ASPIRIN DL-LYSINE
     Indication: Product used for unknown indication
     Route: 048
     Dates: end: 20250806
  3. NADOLOL [Concomitant]
     Active Substance: NADOLOL
     Indication: Product used for unknown indication
     Route: 048
  4. METFORMIN [Concomitant]
     Active Substance: METFORMIN HYDROCHLORIDE
     Indication: Product used for unknown indication
     Route: 048
  5. DIAMICRON  60 mg, modified-release scored tablet [Concomitant]
     Indication: Product used for unknown indication
     Route: 048
  6. FUROSEMIDE [Concomitant]
     Active Substance: FUROSEMIDE
     Indication: Product used for unknown indication
     Route: 048
  7. ATORVASTATIN [Concomitant]
     Active Substance: ATORVASTATIN
     Indication: Product used for unknown indication
     Route: 048
  8. TRULICITY 3 mg, solution for injection in pre-filled pen [Concomitant]
     Indication: Product used for unknown indication
     Dosage: 3MG/WEEK
     Route: 058
  9. COVERAM 5 mg/10 mg, tablet [Concomitant]
     Route: 048
  10. CHOLECALCIFEROL [Concomitant]
     Active Substance: CHOLECALCIFEROL
     Indication: Product used for unknown indication
  11. ACETAMINOPHEN [Concomitant]
     Active Substance: ACETAMINOPHEN
     Indication: Product used for unknown indication

REACTIONS (2)
  - Haemorrhagic transformation stroke [Not Recovered/Not Resolved]
  - Drug interaction [Not Recovered/Not Resolved]

NARRATIVE: CASE EVENT DATE: 20250806
